FAERS Safety Report 13112938 (Version 3)
Quarter: 2017Q3

REPORT INFORMATION
  Report Type: Spontaneous
  Country: US (occurrence: US)
  Receive Date: 20170113
  Receipt Date: 20170721
  Transmission Date: 20171127
  Serious: Yes (Death, Hospitalization)
  Sender: FDA-Public Use
  Company Number: US-B.I. PHARMACEUTICALS,INC./RIDGEFIELD-2017-BI-002138

PATIENT
  Age: 85 Year
  Sex: Female

DRUGS (9)
  1. PRADAXA [Suspect]
     Active Substance: DABIGATRAN ETEXILATE MESYLATE
     Indication: ATRIAL FIBRILLATION
     Route: 065
     Dates: start: 20120224, end: 20120927
  2. MORPHINE [Concomitant]
     Active Substance: MORPHINE
     Indication: DISCOMFORT
  3. ATIVAN [Concomitant]
     Active Substance: LORAZEPAM
     Indication: AGITATION
  4. ATIVAN [Concomitant]
     Active Substance: LORAZEPAM
     Indication: DISCOMFORT
  5. ATIVAN [Concomitant]
     Active Substance: LORAZEPAM
     Indication: PAIN
  6. MORPHINE [Concomitant]
     Active Substance: MORPHINE
     Indication: ANXIETY
     Route: 042
  7. MORPHINE [Concomitant]
     Active Substance: MORPHINE
     Indication: PAIN
  8. ATIVAN [Concomitant]
     Active Substance: LORAZEPAM
     Indication: ANXIETY
     Route: 065
  9. MORPHINE [Concomitant]
     Active Substance: MORPHINE
     Indication: AGITATION

REACTIONS (1)
  - Lower gastrointestinal haemorrhage [Fatal]

NARRATIVE: CASE EVENT DATE: 20120927
